FAERS Safety Report 10552816 (Version 1)
Quarter: 2014Q4

REPORT INFORMATION
  Report Type: Spontaneous
  Country: US (occurrence: US)
  Receive Date: 20141029
  Receipt Date: 20141029
  Transmission Date: 20150529
  Serious: No
  Sender: FDA-Public Use
  Company Number: US-MYLANLABS-2014S1013913

PATIENT
  Sex: Female

DRUGS (1)
  1. RISPERIDONE TABLETS, USP [Suspect]
     Active Substance: RISPERIDONE
     Dosage: 2 MG,QH
     Route: 048
     Dates: start: 2011

REACTIONS (1)
  - Breast enlargement [Not Recovered/Not Resolved]
